FAERS Safety Report 23451443 (Version 3)
Quarter: 2024Q1

REPORT INFORMATION
  Report Type: Report from Study
  Country: US (occurrence: US)
  Receive Date: 20240129
  Receipt Date: 20240304
  Transmission Date: 20240409
  Serious: Yes (Other)
  Sender: FDA-Public Use
  Company Number: US-SA-SAC20240125000952

PATIENT
  Age: 65 Year
  Sex: Female

DRUGS (1)
  1. ISATUXIMAB-IRFC [Suspect]
     Active Substance: ISATUXIMAB-IRFC
     Indication: Plasma cell myeloma
     Dosage: 25 ML, FREQUENCY: ON DAYS 1 AND 15 OF A 28 DAY CYCLE
     Route: 042
     Dates: start: 20230720

REACTIONS (5)
  - Loss of consciousness [Not Recovered/Not Resolved]
  - Malaise [Not Recovered/Not Resolved]
  - Nausea [Unknown]
  - Dizziness [Unknown]
  - Full blood count decreased [Unknown]
